FAERS Safety Report 17979795 (Version 1)
Quarter: 2020Q3

REPORT INFORMATION
  Report Type: Report from Study
  Country: GR (occurrence: GR)
  Receive Date: 20200703
  Receipt Date: 20200703
  Transmission Date: 20201103
  Serious: Yes (Death)
  Sender: FDA-Public Use
  Company Number: GR-BAUSCH-BL-2020-018602

PATIENT
  Age: 72 Year
  Sex: Male

DRUGS (7)
  1. IPRATROPIUM [Concomitant]
     Active Substance: IPRATROPIUM
     Indication: CHRONIC RESPIRATORY DISEASE
     Dosage: 2 UNSPECIFIED UNIT
     Route: 048
  2. EPOETIN ZETA [Concomitant]
     Active Substance: ERYTHROPOIETIN
     Indication: ANAEMIA
     Dosage: 1 UNSPECIFIED UNIT, 40.000
     Route: 058
  3. OMEPRAZOLE. [Concomitant]
     Active Substance: OMEPRAZOLE
     Indication: GASTRITIS PROPHYLAXIS
     Dosage: 2 UNSPECIFIED UNIT
     Route: 048
  4. CALCIUM [Concomitant]
     Active Substance: CALCIUM
     Indication: HYPOCALCAEMIA
     Dosage: 1 UNSPECIFIED UNIT
     Route: 048
  5. IMNOVID [Suspect]
     Active Substance: POMALIDOMIDE
     Indication: PLASMA CELL MYELOMA
     Dosage: 4 MILLIGRAM
     Route: 048
     Dates: start: 20190117, end: 20190903
  6. DEXAMETHASONE. [Suspect]
     Active Substance: DEXAMETHASONE
     Indication: PLASMA CELL MYELOMA
     Route: 065
     Dates: end: 20190903
  7. MONTELUKAST [Concomitant]
     Active Substance: MONTELUKAST SODIUM
     Indication: CHRONIC RESPIRATORY DISEASE
     Dosage: 1 UNSPECIFIED UNIT
     Route: 048

REACTIONS (5)
  - Dyspnoea [Fatal]
  - Drug ineffective [Unknown]
  - Hepatic function abnormal [Fatal]
  - Haemoglobin decreased [Recovered/Resolved]
  - Dyspnoea [Recovered/Resolved]

NARRATIVE: CASE EVENT DATE: 20190822
